FAERS Safety Report 6734283-X (Version None)
Quarter: 2010Q2

REPORT INFORMATION
  Report Type: 
  Country: None (occurrence: None)
  Receive Date: 20100520
  Receipt Date: 20100519
  Transmission Date: 20101027
  Serious: Yes (Other)
  Sender: FDA-Public Use
  Company Number: US-ROXANE LABORATORIES, INC.-2010-RO-00592RO

PATIENT
  Age: 59 Year
  Sex: Female

DRUGS (2)
  1. MYCOPHENOLATE MOFETIL [Suspect]
     Indication: LICHEN PLANUS
     Dosage: 1 G
     Route: 048
  2. MYCOPHENOLATE MOFETIL [Suspect]
     Dosage: 2 G
     Route: 048

REACTIONS (1)
  - OEDEMA PERIPHERAL [None]
